FAERS Safety Report 17999405 (Version 2)
Quarter: 2025Q3

REPORT INFORMATION
  Report Type: Report from Study
  Country: BR (occurrence: BR)
  Receive Date: 20200709
  Receipt Date: 20250708
  Transmission Date: 20251021
  Serious: Yes (Other)
  Sender: NOVARTIS
  Company Number: BR-NOVARTISPH-PHHY2019BR138856

PATIENT
  Age: 30 Year
  Sex: Female

DRUGS (3)
  1. COSENTYX [Suspect]
     Active Substance: SECUKINUMAB
     Indication: Psoriatic arthropathy
     Route: 065
     Dates: start: 20190307
  2. COSENTYX [Suspect]
     Active Substance: SECUKINUMAB
     Route: 065
     Dates: start: 20190411
  3. COSENTYX [Suspect]
     Active Substance: SECUKINUMAB
     Route: 065
     Dates: start: 20200420

REACTIONS (13)
  - COVID-19 [Recovered/Resolved]
  - Malaise [Recovered/Resolved]
  - Nasal congestion [Recovered/Resolved]
  - Pain [Recovered/Resolved]
  - Anosmia [Recovered/Resolved]
  - Ageusia [Recovered/Resolved]
  - Fatigue [Recovered/Resolved]
  - Oropharyngeal pain [Recovered/Resolved]
  - Headache [Recovered/Resolved]
  - Throat irritation [Unknown]
  - Sinusitis [Unknown]
  - Influenza [Unknown]
  - Nasopharyngitis [Recovered/Resolved]

NARRATIVE: CASE EVENT DATE: 20190307
